FAERS Safety Report 8848382 (Version 1)
Quarter: 2012Q4

REPORT INFORMATION
  Report Type: 
  Country: SG (occurrence: SG)
  Receive Date: 20121018
  Receipt Date: 20121018
  Transmission Date: 20130627
  Serious: Yes (Death, Other)
  Sender: FDA-Public Use
  Company Number: PHHY2012SG092597

PATIENT
  Age: 2 Month
  Sex: Female

DRUGS (4)
  1. CICLOSPORIN [Suspect]
     Indication: FAMILIAL HAEMOPHAGOCYTIC LYMPHOHISTIOCYTOSIS
  2. ETOPOSIDE [Concomitant]
     Indication: FAMILIAL HAEMOPHAGOCYTIC LYMPHOHISTIOCYTOSIS
  3. DEXAMETHASONE [Concomitant]
     Indication: FAMILIAL HAEMOPHAGOCYTIC LYMPHOHISTIOCYTOSIS
  4. CHEMOTHERAPEUTICS [Concomitant]
     Indication: FAMILIAL HAEMOPHAGOCYTIC LYMPHOHISTIOCYTOSIS

REACTIONS (9)
  - Bronchopulmonary aspergillosis [Fatal]
  - Pneumonia cytomegaloviral [Fatal]
  - VIIth nerve paralysis [Unknown]
  - Convulsion [Unknown]
  - Blindness cortical [Unknown]
  - Eye movement disorder [Unknown]
  - Dyskinesia [Unknown]
  - Myoclonus [Unknown]
  - Tonic clonic movements [Unknown]
